FAERS Safety Report 5033198-5 (Version None)
Quarter: 2006Q2

REPORT INFORMATION
  Report Type: 
  Country: None (occurrence: None)
  Receive Date: 20060620
  Receipt Date: 20060608
  Transmission Date: 20061013
  Serious: Yes (Other)
  Sender: FDA-Public Use
  Company Number: 163-C5013-06060285

PATIENT
  Age: 70 Year
  Sex: Male
  Weight: 90 kg

DRUGS (2)
  1. REVLIMID [Suspect]
     Indication: MULTIPLE MYELOMA
     Dosage: 25 MG, DAILY ON DAYS 1-21 G28D, ORAL
     Route: 048
     Dates: start: 20050524, end: 20050613
  2. DEXAMETHASONE [Suspect]
     Indication: MULTIPLE MYELOMA
     Dosage: 40 MG, DAILY ON DAYS 1, 8, 15 + 22, ORAL
     Route: 048
     Dates: start: 20050524

REACTIONS (3)
  - HAEMOGLOBIN DECREASED [None]
  - HYPOCALCAEMIA [None]
  - MUSCULAR WEAKNESS [None]
